FAERS Safety Report 9064974 (Version 2)
Quarter: 2013Q3

REPORT INFORMATION
  Report Type: Report from Study
  Country: BR (occurrence: BR)
  Receive Date: 20130206
  Receipt Date: 20130708
  Transmission Date: 20140515
  Serious: Yes (Life-Threatening, Hospitalization, Disabling)
  Sender: FDA-Public Use
  Company Number: BR-BAYER-2013-012833

PATIENT
  Age: 60 Year
  Sex: Male

DRUGS (5)
  1. BETAFERON [Suspect]
     Indication: RELAPSING-REMITTING MULTIPLE SCLEROSIS
     Dosage: 8 MIU, QOD
     Route: 058
     Dates: start: 20070210
  2. PANTOZOL [Concomitant]
     Indication: GASTRIC DISORDER
     Dosage: 1 DF, QD
     Route: 048
  3. TRAMAL [Concomitant]
     Indication: PAIN
     Dosage: 1 DF, BID
     Route: 048
  4. MACRODANTIN [Concomitant]
     Indication: ANTIBIOTIC THERAPY
     Dosage: 1 DF, BID
     Route: 048
  5. PROPRANOLOL [Concomitant]
     Indication: PRODUCT USED FOR UNKNOWN INDICATION
     Dosage: 1 DF, QD
     Route: 048

REACTIONS (6)
  - Convulsion [Recovered/Resolved]
  - Abasia [Not Recovered/Not Resolved]
  - Bedridden [Not Recovered/Not Resolved]
  - Confusional state [Not Recovered/Not Resolved]
  - Secretion discharge [Not Recovered/Not Resolved]
  - Dyspnoea [Not Recovered/Not Resolved]
